FAERS Safety Report 18111707 (Version 1)
Quarter: 2020Q3

REPORT INFORMATION
  Report Type: Spontaneous
  Country: CN (occurrence: CN)
  Receive Date: 20200804
  Receipt Date: 20200804
  Transmission Date: 20201103
  Serious: Yes (Hospitalization)
  Sender: FDA-Public Use
  Company Number: CN-BAXTER-2020BAX015549

PATIENT
  Age: 16 Year
  Sex: Male
  Weight: 70 kg

DRUGS (17)
  1. DOXORUBICIN HYDROCHLORIDE. [Suspect]
     Active Substance: DOXORUBICIN HYDROCHLORIDE
     Indication: HODGKIN^S DISEASE
     Dosage: DAY 1?3, DOXORUBICIN HYDROCHLORIDE 48 MG + 0.9% SODIUM CHLORIDE 955 ML
     Route: 041
     Dates: start: 20200702, end: 20200704
  2. VINCRISTINE SULFATE. [Suspect]
     Active Substance: VINCRISTINE SULFATE
     Dosage: DOSE RE?INTRODUCED, VINCRISTINE SULFATE + 0.9% SODIUM CHLORIDE
     Route: 042
     Dates: start: 202007
  3. ENDOXAN [Suspect]
     Active Substance: CYCLOPHOSPHAMIDE
     Dosage: DOSE RE?INTRODUCED, ENDOXAN + 0.9% SODIUM CHLORIDE
     Route: 041
     Dates: start: 202007
  4. 0.9% SODIUM CHLORIDE INJECTION [Suspect]
     Active Substance: SODIUM CHLORIDE
     Indication: MEDICATION DILUTION
     Dosage: DAY 1?2, ENDOXAN 2292 MG + 0.9% SODIUM CHLORIDE 162 ML
     Route: 041
     Dates: start: 20200702, end: 20200703
  5. 0.9% SODIUM CHLORIDE INJECTION [Suspect]
     Active Substance: SODIUM CHLORIDE
     Dosage: DAY 1?3, DOXORUBICIN HYDROCHLORIDE 48 MG + 0.9% SODIUM CHLORIDE 955 ML
     Route: 041
     Dates: start: 20200702, end: 20200704
  6. 0.9% SODIUM CHLORIDE INJECTION [Suspect]
     Active Substance: SODIUM CHLORIDE
     Dosage: DOSE RE?INTRODUCED, VINCRISTINE SULFATE + 0.9% SODIUM CHLORIDE
     Route: 042
     Dates: start: 202007
  7. DOXORUBICIN HYDROCHLORIDE. [Suspect]
     Active Substance: DOXORUBICIN HYDROCHLORIDE
     Dosage: DOSE RE?INTRODUCED, DOXORUBICIN HYDROCHLORIDE + 0.9% SODIUM CHLORIDE
     Route: 041
     Dates: start: 202007
  8. MESNA SODIUM 2 MERCAPTOETHANE SULFONATE [Suspect]
     Active Substance: MESNA
     Indication: PROPHYLAXIS
     Dosage: DAY 1?2
     Route: 041
     Dates: start: 20200702, end: 20200703
  9. 0.9% SODIUM CHLORIDE INJECTION [Suspect]
     Active Substance: SODIUM CHLORIDE
     Dosage: ONDANSETRON 8 MG + 0.9% NS 25 ML, 30 MINUTES BEFORE DAILY CHEMOTHERAPY
     Route: 042
     Dates: start: 20200702, end: 20200704
  10. MESNA SODIUM 2 MERCAPTOETHANE SULFONATE [Suspect]
     Active Substance: MESNA
     Dosage: DOSE RE?INTRODUCED
     Route: 041
     Dates: start: 202007
  11. VINCRISTINE SULFATE. [Suspect]
     Active Substance: VINCRISTINE SULFATE
     Indication: HODGKIN^S DISEASE
     Dosage: DAY 1, VINCRISTINE SULFATE 2 MG + 0.9% SODIUM CHLORIDE 20 ML
     Route: 042
     Dates: start: 20200702, end: 20200702
  12. ENDOXAN [Suspect]
     Active Substance: CYCLOPHOSPHAMIDE
     Indication: HODGKIN^S DISEASE
     Dosage: DAY 1?2, ENDOXAN 2292 MG + 0.9% SODIUM CHLORIDE 162 ML
     Route: 041
     Dates: start: 20200702, end: 20200703
  13. 0.9% SODIUM CHLORIDE INJECTION [Suspect]
     Active Substance: SODIUM CHLORIDE
     Dosage: DAY 1, VINCRISTINE SULFATE 2 MG + 0.9% SODIUM CHLORIDE 20 ML
     Route: 042
     Dates: start: 20200702, end: 20200702
  14. RECOMBINANT HUMAN GRANULOCYTE STIMULATING FACTOR [Concomitant]
     Indication: PROPHYLAXIS
     Route: 058
     Dates: start: 20200706, end: 20200706
  15. 0.9% SODIUM CHLORIDE INJECTION [Suspect]
     Active Substance: SODIUM CHLORIDE
     Dosage: DOSE RE?INTRODUCED, DOXORUBICIN HYDROCHLORIDE + 0.9% SODIUM CHLORIDE
     Route: 041
     Dates: start: 202007
  16. ONDANSETRON [Suspect]
     Active Substance: ONDANSETRON
     Indication: PROPHYLAXIS
     Dosage: ONDANSETRON 8 MG + 0.9% NS 25 ML, 30 MINUTES BEFORE DAILY CHEMOTHERAPY
     Route: 042
     Dates: start: 20200702, end: 20200704
  17. 0.9% SODIUM CHLORIDE INJECTION [Suspect]
     Active Substance: SODIUM CHLORIDE
     Dosage: DOSE RE?INTRODUCED, ENDOXAN + 0.9% SODIUM CHLORIDE
     Route: 041
     Dates: start: 202007

REACTIONS (1)
  - Pancytopenia [Recovering/Resolving]

NARRATIVE: CASE EVENT DATE: 20200712
